FAERS Safety Report 7493889-3 (Version None)
Quarter: 2011Q2

REPORT INFORMATION
  Report Type: 
  Country: None (occurrence: None)
  Receive Date: 20110520
  Receipt Date: 20110510
  Transmission Date: 20111010
  Serious: Yes (Hospitalization)
  Sender: FDA-Public Use
  Company Number: US-ROCHE-676240

PATIENT
  Sex: Female
  Weight: 71.5 kg

DRUGS (23)
  1. METOPROLOL TARTRATE [Concomitant]
     Dates: start: 20030310
  2. METHOTREXATE [Concomitant]
     Dates: start: 20080618
  3. COLACE [Concomitant]
     Dates: start: 20091215
  4. BLINDED TOCILIZUMAB [Suspect]
     Indication: RHEUMATOID ARTHRITIS
     Route: 042
     Dates: start: 20081006
  5. NORTRIPTYLINE HCL [Concomitant]
     Dates: start: 20020101
  6. LOPRESSOR [Concomitant]
  7. PRILOSEC [Concomitant]
     Dates: start: 20000310
  8. ZETIA [Concomitant]
     Dates: start: 20040310
  9. DARVOCET-N 50 [Concomitant]
     Route: 042
     Dates: start: 20000101
  10. FOLIC ACID [Concomitant]
     Dates: start: 20080310
  11. TOCILIZUMAB [Suspect]
     Indication: RHEUMATOID ARTHRITIS
     Dosage: ROUTE, DOSE AND FREQUENCY AS PER PROTOCOL
     Route: 042
     Dates: end: 20100127
  12. METOPROLOL TARTRATE [Concomitant]
     Dates: start: 20090326
  13. PREMARIN [Concomitant]
     Dates: start: 20090521
  14. ACETAMINOPHEN [Concomitant]
  15. ACETAMINOPHEN [Concomitant]
     Dosage: PRE-INFUSION
     Dates: start: 20081006
  16. NORVASC [Concomitant]
     Dates: start: 20001215
  17. NORTRIPTYLINE HCL [Concomitant]
     Dates: start: 19930101
  18. AVALIDE [Concomitant]
     Dosage: TDD: 300/ 12.5 MG
     Dates: start: 20030301
  19. PLAVIX [Concomitant]
     Dates: start: 20020301
  20. DIOVAN HCT [Concomitant]
  21. NORTRIPTYLINE HCL [Concomitant]
     Dosage: FREQUENCY: QD
     Dates: start: 20030301
  22. NORTRIPTYLINE HCL [Concomitant]
     Dates: start: 20081201
  23. PLAVIX [Concomitant]
     Dates: start: 20091201

REACTIONS (4)
  - BACTERAEMIA [None]
  - LOCALISED INFECTION [None]
  - BACK PAIN [None]
  - OSTEOMYELITIS [None]
